FAERS Safety Report 5709629-1 (Version None)
Quarter: 2008Q2

REPORT INFORMATION
  Report Type: 
  Country: None (occurrence: None)
  Receive Date: 20080418
  Receipt Date: 20080409
  Transmission Date: 20081010
  Serious: Yes (Hospitalization)
  Sender: FDA-Public Use
  Company Number: B0515901A

PATIENT
  Age: 75 Year
  Sex: Male

DRUGS (6)
  1. AUGMENTIN '125' [Suspect]
     Dosage: 1G THREE TIMES PER DAY
     Route: 048
     Dates: start: 20071215, end: 20071227
  2. TAVANIC [Suspect]
     Route: 048
     Dates: start: 20071211, end: 20071214
  3. DAONIL [Concomitant]
     Indication: DRUG USE FOR UNKNOWN INDICATION
     Dosage: 5MG THREE TIMES PER DAY
     Route: 048
     Dates: end: 20071227
  4. ACTOS [Concomitant]
     Dosage: 30MG PER DAY
     Route: 048
  5. IMODIUM [Concomitant]
     Indication: DRUG USE FOR UNKNOWN INDICATION
     Route: 048
  6. ATACAND [Concomitant]
     Route: 048

REACTIONS (5)
  - ANOREXIA [None]
  - ASTHENIA [None]
  - BEDRIDDEN [None]
  - THROMBOCYTOPENIA [None]
  - WEIGHT DECREASED [None]
